FAERS Safety Report 10412937 (Version 3)
Quarter: 2016Q1

REPORT INFORMATION
  Report Type: Spontaneous
  Country: US (occurrence: US)
  Receive Date: 20140827
  Receipt Date: 20160307
  Transmission Date: 20160525
  Serious: Yes (Other)
  Sender: FDA-Public Use
  Company Number: US-BAYER-2014-124640

PATIENT
  Age: 29 Year
  Sex: Female

DRUGS (1)
  1. MIRENA [Suspect]
     Active Substance: LEVONORGESTREL
     Indication: CONTRACEPTION
     Dosage: 20 MCG/24HR, CONT
     Route: 015
     Dates: start: 201404, end: 20140711

REACTIONS (18)
  - Gestational diabetes [None]
  - Alopecia [None]
  - Pain [Not Recovered/Not Resolved]
  - Rash erythematous [None]
  - Incision site haemorrhage [None]
  - Maternal exposure before pregnancy [None]
  - Self esteem decreased [None]
  - Abdominal pain lower [Not Recovered/Not Resolved]
  - Infertility female [Recovered/Resolved]
  - Dyspnoea [None]
  - Post-traumatic stress disorder [None]
  - Keloid scar [None]
  - Uterine perforation [Not Recovered/Not Resolved]
  - Genital haemorrhage [None]
  - Fatigue [None]
  - Anaemia [None]
  - Activities of daily living impaired [None]
  - Complication of device insertion [None]

NARRATIVE: CASE EVENT DATE: 2014
